FAERS Safety Report 10217613 (Version 1)
Quarter: 2014Q2

REPORT INFORMATION
  Report Type: Report from Study
  Country: CN (occurrence: CN)
  Receive Date: 20140604
  Receipt Date: 20140604
  Transmission Date: 20141212
  Serious: Yes (Death)
  Sender: FDA-Public Use
  Company Number: CN-BAXTER-2014BAX028920

PATIENT
  Sex: 0

DRUGS (9)
  1. ENDOXAN 1G [Suspect]
     Indication: DIFFUSE LARGE B-CELL LYMPHOMA
     Dosage: ON DAY 1; FOR 4 CYCLES
     Route: 042
  2. BEVACIZUMAB [Suspect]
     Indication: DIFFUSE LARGE B-CELL LYMPHOMA
     Dosage: ON DAY 1; FOR 4 CYCLES
     Route: 042
  3. RITUXIMAB [Suspect]
     Indication: DIFFUSE LARGE B-CELL LYMPHOMA
     Dosage: ON DAY 1; FOR 4 CYCLES
     Route: 042
  4. VINCRISTINE [Suspect]
     Indication: DIFFUSE LARGE B-CELL LYMPHOMA
     Dosage: ON DAY 1; FOR 4 CYCLES
     Route: 042
  5. DOXORUBICIN [Suspect]
     Indication: DIFFUSE LARGE B-CELL LYMPHOMA
     Dosage: ON DAY 1; FOR 4 CYCLES
     Route: 042
  6. PREDNISONE [Suspect]
     Indication: DIFFUSE LARGE B-CELL LYMPHOMA
     Dosage: ON DAYS1-5; FOR 4 CYCLES
     Route: 048
  7. DEXAMETHASONE [Suspect]
     Indication: PREMEDICATION
     Route: 042
  8. PROMETHAZINE [Suspect]
     Indication: PREMEDICATION
     Route: 030
  9. GRANULOCYTE COLONY-STIMULATING FACTOR NOS [Suspect]
     Indication: PROPHYLAXIS
     Route: 065

REACTIONS (1)
  - Neoplasm progression [Fatal]
